FAERS Safety Report 18460834 (Version 2)
Quarter: 2020Q4

REPORT INFORMATION
  Report Type: Report from Study
  Country: US (occurrence: US)
  Receive Date: 20201103
  Receipt Date: 20201116
  Transmission Date: 20210114
  Serious: Yes (Other)
  Sender: FDA-Public Use
  Company Number: US-BEH-2020124213

PATIENT
  Age: 8 Year
  Sex: Male

DRUGS (1)
  1. HIZENTRA [Suspect]
     Active Substance: HUMAN IMMUNOGLOBULIN G
     Indication: PRIMARY IMMUNODEFICIENCY SYNDROME
     Dosage: 4 GRAM, QW
     Route: 058
     Dates: start: 20200919

REACTIONS (8)
  - Injection site haemorrhage [Unknown]
  - Nausea [Unknown]
  - Body temperature increased [Unknown]
  - Wrong technique in product usage process [Unknown]
  - Injection site nerve damage [Unknown]
  - Meningism [Unknown]
  - Headache [Unknown]
  - Vomiting [Unknown]

NARRATIVE: CASE EVENT DATE: 20201012
